FAERS Safety Report 7224881-1 (Version None)
Quarter: 2011Q1

REPORT INFORMATION
  Report Type: 
  Country: None (occurrence: None)
  Receive Date: 20110103
  Receipt Date: 20101222
  Transmission Date: 20110831
  Serious: Yes (Hospitalization)
  Sender: FDA-Public Use
  Company Number: 2010SP043549

PATIENT
  Age: 49 Year
  Sex: Female

DRUGS (2)
  1. RADIOTHERAPY [Concomitant]
  2. TEMODAL [Suspect]
     Indication: ANAPLASTIC ASTROCYTOMA
     Dosage: 75 MG/M2; QD; PO
     Route: 048

REACTIONS (1)
  - HEPATITIS B [None]
